FAERS Safety Report 11750629 (Version 1)
Quarter: 2015Q4

REPORT INFORMATION
  Report Type: Spontaneous
  Country: ES (occurrence: ES)
  Receive Date: 20151118
  Receipt Date: 20151118
  Transmission Date: 20160304
  Serious: No
  Sender: FDA-Public Use
  Company Number: ES-ALK-ABELLO A/S-1044372

PATIENT
  Sex: Male

DRUGS (1)
  1. HONEY BEE VENOM [Suspect]
     Active Substance: APIS MELLIFERA VENOM
     Route: 058

REACTIONS (1)
  - Urticaria [Recovered/Resolved]
